FAERS Safety Report 17208237 (Version 1)
Quarter: 2019Q4

REPORT INFORMATION
  Report Type: Spontaneous
  Country: US (occurrence: US)
  Receive Date: 20191227
  Receipt Date: 20191227
  Transmission Date: 20200122
  Serious: No
  Sender: FDA-Public Use
  Company Number: US-SCILEX PHARMACEUTICALS INC.-2019SCX00085

PATIENT
  Age: 82 Year
  Sex: Male
  Weight: 88.44 kg

DRUGS (5)
  1. LIDOCAINE 5% PATCH [Concomitant]
     Active Substance: LIDOCAINE
     Dosage: 1 DOSAGE UNITS
     Route: 061
  2. ZTLIDO [Suspect]
     Active Substance: LIDOCAINE
     Indication: BACK PAIN
     Dosage: 1 PATCH, EVERY 48 HOURS FOR 12 HOURS
     Route: 061
     Dates: start: 201911
  3. FERROUS SULFATE. [Concomitant]
     Active Substance: FERROUS SULFATE
  4. FLAXSEED [Concomitant]
     Active Substance: FLAX SEED
     Dosage: 1000 MG
  5. VITAMIN B12 [Concomitant]
     Active Substance: CYANOCOBALAMIN

REACTIONS (3)
  - Product use in unapproved indication [Not Recovered/Not Resolved]
  - Application site pruritus [Recovering/Resolving]
  - Erythema [Unknown]

NARRATIVE: CASE EVENT DATE: 201911
